FAERS Safety Report 7272183-X (Version None)
Quarter: 2010Q4

REPORT INFORMATION
  Report Type: 
  Country: None (occurrence: None)
  Receive Date: 20101215
  Receipt Date: 20100727
  Transmission Date: 20110411
  Serious: Yes (Hospitalization)
  Sender: FDA-Public Use
  Company Number: AMI0023316

PATIENT
  Sex: Male

DRUGS (1)
  1. DEMSER [Suspect]
     Indication: PHAEOCHROMOCYTOMA
     Dosage: 047, 1982 - ONGOING

REACTIONS (2)
  - HAEMORRHAGIC STROKE [None]
  - TRANSIENT ISCHAEMIC ATTACK [None]
